FAERS Safety Report 7552688-4 (Version None)
Quarter: 2011Q2

REPORT INFORMATION
  Report Type: 
  Country: None (occurrence: None)
  Receive Date: 20110616
  Receipt Date: 20110608
  Transmission Date: 20111010
  Serious: Yes (Hospitalization, Other)
  Sender: FDA-Public Use
  Company Number: US-SANOFI-AVENTIS-2011SA037145

PATIENT
  Sex: Female

DRUGS (2)
  1. LANTUS [Suspect]
  2. LANTUS [Suspect]
     Dosage: DOSE:20 UNIT(S)
     Route: 058

REACTIONS (6)
  - MALAISE [None]
  - OOPHORECTOMY [None]
  - INFECTION [None]
  - CENTRAL VENOUS CATHETERISATION [None]
  - SEPTIC SHOCK [None]
  - CATARACT OPERATION [None]
